FAERS Safety Report 6216055-8 (Version None)
Quarter: 2009Q2

REPORT INFORMATION
  Report Type: 
  Country: None (occurrence: None)
  Receive Date: 20090605
  Receipt Date: 20090601
  Transmission Date: 20091009
  Serious: Yes (Other)
  Sender: FDA-Public Use
  Company Number: IN-BRISTOL-MYERS SQUIBB COMPANY-14645840

PATIENT
  Age: 26 Year
  Sex: Male

DRUGS (2)
  1. ARIPIPRAZOLE [Suspect]
     Indication: DEPRESSION
     Dosage: 30MG TABLET 26 TABLETS
     Route: 048
  2. AMITRIPTLINE HYDROCHLORIDE TAB [Suspect]
     Indication: DEPRESSION
     Dosage: 25MG TABLET 42 TABLETS
     Route: 048

REACTIONS (6)
  - DIZZINESS [None]
  - DYSPHORIA [None]
  - GAIT DISTURBANCE [None]
  - INTENTIONAL OVERDOSE [None]
  - PSYCHOMOTOR SKILLS IMPAIRED [None]
  - SUICIDE ATTEMPT [None]
